FAERS Safety Report 10401411 (Version 4)
Quarter: 2015Q2

REPORT INFORMATION
  Report Type: Spontaneous
  Country: US (occurrence: US)
  Receive Date: 20140822
  Receipt Date: 20150626
  Transmission Date: 20150821
  Serious: Yes (Hospitalization)
  Sender: FDA-Public Use
  Company Number: US-UCBSA-2014009319

PATIENT
  Sex: Male

DRUGS (1)
  1. CIMZIA [Suspect]
     Active Substance: CERTOLIZUMAB PEGOL
     Indication: CROHN^S DISEASE
     Dosage: 400 MG, EV 4 WEEKS, LOT # 120383, EXPIRY DATE: FEB-2016
     Dates: start: 20091102

REACTIONS (2)
  - Hospitalisation [Not Recovered/Not Resolved]
  - Abscess [Not Recovered/Not Resolved]
